FAERS Safety Report 16943198 (Version 1)
Quarter: 2019Q4

REPORT INFORMATION
  Report Type: Report from Study
  Country: None (occurrence: US)
  Receive Date: 20191021
  Receipt Date: 20191021
  Transmission Date: 20200122
  Serious: Yes (Other)
  Sender: FDA-Public Use
  Company Number: US-ABBVIE-19K-163-2970415-00

PATIENT
  Sex: Female

DRUGS (2)
  1. HUMIRA [Suspect]
     Active Substance: ADALIMUMAB
     Indication: PSORIASIS
  2. HUMIRA [Suspect]
     Active Substance: ADALIMUMAB
     Indication: PSORIATIC ARTHROPATHY
     Route: 058

REACTIONS (7)
  - Autoimmune disorder [Unknown]
  - Arthralgia [Unknown]
  - Breast neoplasm [Unknown]
  - Thrombosis [Unknown]
  - Condition aggravated [Unknown]
  - Systemic lupus erythematosus [Unknown]
  - Psoriasis [Unknown]
